FAERS Safety Report 7790887-7 (Version None)
Quarter: 2011Q3

REPORT INFORMATION
  Report Type: 
  Country: None (occurrence: None)
  Receive Date: 20110930
  Receipt Date: 20110921
  Transmission Date: 20111222
  Serious: Yes (Hospitalization)
  Sender: FDA-Public Use
  Company Number: FR-ASTRAZENECA-2011SE57437

PATIENT
  Age: 60 Year
  Sex: Male

DRUGS (4)
  1. NEBIVOLOL HCL [Concomitant]
     Route: 048
  2. CRESTOR [Suspect]
     Route: 048
     Dates: start: 20050101, end: 20110501
  3. ASPIRIN [Concomitant]
     Route: 048
  4. PERINDOPRIL ERBUMINE [Concomitant]
     Route: 048

REACTIONS (2)
  - INFLUENZA LIKE ILLNESS [None]
  - TENDON RUPTURE [None]
